FAERS Safety Report 5084229-8 (Version None)
Quarter: 2006Q3

REPORT INFORMATION
  Report Type: 
  Country: None (occurrence: None)
  Receive Date: 20060821
  Receipt Date: 20060209
  Transmission Date: 20061208
  Serious: No
  Sender: FDA-Public Use
  Company Number: US-BRISTOL-MYERS SQUIBB COMPANY-13286406

PATIENT
  Age: 85 Year
  Sex: Female
  Weight: 52 kg

DRUGS (9)
  1. TEQUIN [Suspect]
     Indication: URINARY TRACT INFECTION
  2. COUMADIN [Concomitant]
     Indication: ATRIAL FIBRILLATION
     Dates: start: 19900101
  3. MONOPRIL [Concomitant]
     Indication: HYPERTENSION
  4. LANOXIN [Concomitant]
  5. NORVASC [Concomitant]
     Dates: start: 20020101, end: 20060206
  6. TYLENOL [Concomitant]
     Dosage: FOR 3 TO 4 MONTHS
  7. MEGESTROL [Concomitant]
  8. CALCIUM + VITAMIN D [Concomitant]
     Dosage: 1 TO 2 DAILY
     Dates: start: 20020101
  9. VITA S FORTE [Concomitant]
     Dates: start: 20040101

REACTIONS (1)
  - DRUG INEFFECTIVE [None]
